FAERS Safety Report 18531698 (Version 1)
Quarter: 2020Q4

REPORT INFORMATION
  Report Type: Spontaneous
  Country: US (occurrence: US)
  Receive Date: 20201123
  Receipt Date: 20201123
  Transmission Date: 20210114
  Serious: No
  Sender: FDA-Public Use
  Company Number: US-JNJFOC-20201128133

PATIENT
  Age: 76 Year
  Sex: Male
  Weight: 77.18 kg

DRUGS (2)
  1. TYLENOL [Suspect]
     Active Substance: ACETAMINOPHEN
     Indication: ARTHRALGIA
     Dosage: 4-8 PILLS DAILY
     Route: 048
     Dates: start: 20190106
  2. TYLENOL [Suspect]
     Active Substance: ACETAMINOPHEN
     Indication: OSTEONECROSIS

REACTIONS (4)
  - Oral pruritus [Not Recovered/Not Resolved]
  - Oral discomfort [Not Recovered/Not Resolved]
  - Wrong technique in product usage process [Unknown]
  - Throat irritation [Not Recovered/Not Resolved]

NARRATIVE: CASE EVENT DATE: 20201112
